FAERS Safety Report 11460164 (Version 3)
Quarter: 2015Q3

REPORT INFORMATION
  Report Type: Spontaneous
  Country: CH (occurrence: GB)
  Receive Date: 20150904
  Receipt Date: 20150925
  Transmission Date: 20151125
  Serious: Yes (Death, Hospitalization, Other)
  Sender: FDA-Public Use
  Company Number: CH-PFIZER INC-2015294175

PATIENT
  Age: 19 Year
  Sex: Female
  Weight: 72 kg

DRUGS (1)
  1. EFFEXOR XR [Suspect]
     Active Substance: VENLAFAXINE HYDROCHLORIDE
     Dosage: UNK

REACTIONS (17)
  - Pulmonary oedema [Unknown]
  - Malaise [Unknown]
  - Blood glucose decreased [Unknown]
  - Cardiac failure [Unknown]
  - Seizure [Unknown]
  - Nausea [Unknown]
  - Overdose [Fatal]
  - Purging [Unknown]
  - Vomiting [Unknown]
  - Toxicity to various agents [Fatal]
  - Pleural effusion [Unknown]
  - Suicide attempt [Recovered/Resolved]
  - Blood pressure abnormal [Unknown]
  - Depressed level of consciousness [Unknown]
  - Multi-organ failure [Unknown]
  - Heart rate increased [Unknown]
  - Respiratory rate increased [Unknown]

NARRATIVE: CASE EVENT DATE: 201111
